FAERS Safety Report 21241525 (Version 1)
Quarter: 2022Q3

REPORT INFORMATION
  Report Type: Spontaneous
  Country: PT (occurrence: PT)
  Receive Date: 20220823
  Receipt Date: 20220823
  Transmission Date: 20221027
  Serious: Yes (Other)
  Sender: FDA-Public Use
  Company Number: None

PATIENT
  Age: 69 Year
  Sex: Female

DRUGS (6)
  1. FLUOROURACIL [Suspect]
     Active Substance: FLUOROURACIL
     Indication: Adenocarcinoma gastric
     Dosage: THERAPY END DATE : NASK
     Dates: start: 20211122
  2. HERZUMA [Suspect]
     Active Substance: TRASTUZUMAB-PKRB
     Indication: Adenocarcinoma gastric
     Dosage: UNIT DOSE : 172 MG, FREQUENCY TIME :2 WEEKS, THERAPY END DATE : NASK
     Dates: start: 20211228
  3. LEVOLEUCOVORIN DISODIUM [Suspect]
     Active Substance: LEVOLEUCOVORIN DISODIUM
     Indication: Adenocarcinoma gastric
     Dosage: THERAPY END DATE :NASK
     Dates: start: 20211122
  4. OXALIPLATIN [Suspect]
     Active Substance: OXALIPLATIN
     Indication: Adenocarcinoma gastric
     Dosage: DURATION : 1 MONTH
     Dates: start: 20211122, end: 20211228
  5. LOSARTAN [Concomitant]
     Active Substance: LOSARTAN
     Indication: Product used for unknown indication
     Dosage: 100 MG, FREQUENCY TIME : 1 DAY
  6. DOMPERIDONE [Concomitant]
     Active Substance: DOMPERIDONE
     Indication: Product used for unknown indication
     Dosage: 10 MG, FREQUENCY TIME : 1 DAY, 1 TABLET 20 MINUTES BEFORE MEALS, STRENGTH : 10 MG

REACTIONS (1)
  - Deep vein thrombosis [Recovered/Resolved]

NARRATIVE: CASE EVENT DATE: 20220330
